FAERS Safety Report 7209489-6 (Version None)
Quarter: 2011Q1

REPORT INFORMATION
  Report Type: 
  Country: None (occurrence: None)
  Receive Date: 20110104
  Receipt Date: 20101222
  Transmission Date: 20110831
  Serious: Yes (Other)
  Sender: FDA-Public Use
  Company Number: PHHY2010JP05001

PATIENT
  Age: 69 Year
  Sex: Male

DRUGS (2)
  1. ZOMETA [Suspect]
     Indication: METASTASES TO BONE
     Dosage: UNK
     Route: 042
     Dates: start: 20070901
  2. TAXOTERE [Concomitant]
     Indication: METASTASES TO BONE
     Dosage: UNK
     Route: 041
     Dates: start: 20090201

REACTIONS (5)
  - OSTEONECROSIS OF JAW [None]
  - OSTEOMYELITIS [None]
  - BONE DISORDER [None]
  - SKIN ULCER [None]
  - OSTEITIS [None]
